FAERS Safety Report 16019813 (Version 7)
Quarter: 2020Q1

REPORT INFORMATION
  Report Type: Spontaneous
  Country: US (occurrence: US)
  Receive Date: 20190228
  Receipt Date: 20200103
  Transmission Date: 20200409
  Serious: Yes (Hospitalization, Other)
  Sender: FDA-Public Use
  Company Number: US-PFIZER INC-2018457573

PATIENT
  Age: 59 Year
  Sex: Female
  Weight: 37 kg

DRUGS (4)
  1. DETROL LA [Suspect]
     Active Substance: TOLTERODINE TARTRATE
     Indication: INCONTINENCE
     Dosage: 4 MG, 1X/DAY
     Route: 048
  2. RYTARY [Concomitant]
     Active Substance: CARBIDOPA\LEVODOPA
     Indication: PARKINSON^S DISEASE
     Dosage: 2 DF, 3X/DAY
     Route: 048
  3. DETROL LA [Suspect]
     Active Substance: TOLTERODINE TARTRATE
     Dosage: 2 MG, UNK
  4. RYTARY [Concomitant]
     Active Substance: CARBIDOPA\LEVODOPA
     Dosage: 1 DF, 1X/DAY
     Route: 048

REACTIONS (3)
  - Choking [Unknown]
  - Body height decreased [Unknown]
  - Infection [Unknown]

NARRATIVE: CASE EVENT DATE: 20181031
